FAERS Safety Report 9194061 (Version 1)
Quarter: 2013Q1

REPORT INFORMATION
  Report Type: Spontaneous
  Country: FR (occurrence: FR)
  Receive Date: 20130327
  Receipt Date: 20130327
  Transmission Date: 20140127
  Serious: Yes (Hospitalization)
  Sender: FDA-Public Use
  Company Number: FR-PFIZER INC-2013092543

PATIENT
  Age: 23 Year
  Sex: Female

DRUGS (1)
  1. REVATIO [Suspect]
     Dosage: 1 DF, 1X/DAY
     Route: 048
     Dates: start: 200609

REACTIONS (2)
  - Dermatitis exfoliative [Recovered/Resolved]
  - Eczema [Unknown]
